FAERS Safety Report 20050099 (Version 1)
Quarter: 2021Q4

REPORT INFORMATION
  Report Type: Report from Study
  Country: US (occurrence: US)
  Receive Date: 20211109
  Receipt Date: 20211109
  Transmission Date: 20220304
  Serious: No
  Sender: FDA-Public Use
  Company Number: US-SUNOVION-2021SUN004104

PATIENT
  Sex: Male

DRUGS (1)
  1. KYNMOBI [Suspect]
     Active Substance: APOMORPHINE HYDROCHLORIDE
     Dosage: 15 MG
     Route: 060
     Dates: start: 20211005

REACTIONS (8)
  - Allergy to chemicals [Unknown]
  - Gingival ulceration [Unknown]
  - Burning sensation [Unknown]
  - Gingival swelling [Recovered/Resolved]
  - Dry mouth [Unknown]
  - Hypoaesthesia oral [Recovering/Resolving]
  - Lip swelling [Recovered/Resolved]
  - Swollen tongue [Recovered/Resolved]

NARRATIVE: CASE EVENT DATE: 20211024
